FAERS Safety Report 21164289 (Version 4)
Quarter: 2022Q4

REPORT INFORMATION
  Report Type: Other
  Country: DE (occurrence: None)
  Receive Date: 20220803
  Receipt Date: 20221008
  Transmission Date: 20230113
  Serious: Yes (Other)
  Sender: FDA-Public Use
  Company Number: DE-ROCHE-2812920

PATIENT
  Age: 42 Year
  Sex: Female
  Weight: 71 kg

DRUGS (13)
  1. OCRELIZUMAB [Suspect]
     Active Substance: OCRELIZUMAB
     Indication: Relapsing-remitting multiple sclerosis
     Route: 042
     Dates: start: 20180205
  2. COMIRNATY [Suspect]
     Active Substance: TOZINAMERAN
     Indication: COVID-19 immunisation
     Dosage: FIRST DOSE
     Route: 065
     Dates: start: 20210418
  3. COMIRNATY [Suspect]
     Active Substance: TOZINAMERAN
     Dosage: SECOND DOSE
     Route: 065
     Dates: start: 20210508
  4. HYDROMORPHONE [Concomitant]
     Active Substance: HYDROMORPHONE
  5. CELEBREX [Concomitant]
     Active Substance: CELECOXIB
  6. CELEBREX [Concomitant]
     Active Substance: CELECOXIB
  7. CITALOPRAM [Concomitant]
     Active Substance: CITALOPRAM HYDROBROMIDE
  8. PANTOPRAZOLE [Concomitant]
     Active Substance: PANTOPRAZOLE
  9. JARDIANCE [Concomitant]
     Active Substance: EMPAGLIFLOZIN
  10. JARDIANCE [Concomitant]
     Active Substance: EMPAGLIFLOZIN
  11. DULOXETINE [Concomitant]
     Active Substance: DULOXETINE
  12. PRAMIPEXOLE [Concomitant]
     Active Substance: PRAMIPEXOLE
     Dosage: 2 IN THE EVENING
  13. OZEMPIC [Concomitant]
     Active Substance: SEMAGLUTIDE

REACTIONS (10)
  - Hypoaesthesia [Not Recovered/Not Resolved]
  - Bladder disorder [Recovered/Resolved]
  - Influenza like illness [Recovered/Resolved]
  - Facial paralysis [Not Recovered/Not Resolved]
  - Speech disorder [Not Recovered/Not Resolved]
  - Intervertebral disc protrusion [Not Recovered/Not Resolved]
  - Herpes zoster [Recovered/Resolved]
  - Fatigue [Recovered/Resolved]
  - Asthenia [Recovered/Resolved]
  - Weight decreased [Not Recovered/Not Resolved]

NARRATIVE: CASE EVENT DATE: 20190101
